FAERS Safety Report 19910087 (Version 1)
Quarter: 2021Q4

REPORT INFORMATION
  Report Type: Report from Study
  Country: US (occurrence: US)
  Receive Date: 20211003
  Receipt Date: 20211003
  Transmission Date: 20220304
  Serious: Yes (Other)
  Sender: FDA-Public Use
  Company Number: US-NOVARTISPH-NVSC2021US219198

PATIENT
  Age: 55 Year
  Sex: Female

DRUGS (1)
  1. GILENYA [Suspect]
     Active Substance: FINGOLIMOD HYDROCHLORIDE
     Indication: Relapsing-remitting multiple sclerosis
     Dosage: 0.5 MG, QD
     Route: 048
     Dates: start: 20110812

REACTIONS (9)
  - Spinal cord neoplasm [Unknown]
  - Immunodeficiency [Unknown]
  - Polyneuropathy [Unknown]
  - Trigeminal neuralgia [Unknown]
  - Spinal osteoarthritis [Unknown]
  - Scoliosis [Unknown]
  - Intervertebral disc compression [Unknown]
  - Back pain [Unknown]
  - White blood cell count decreased [Unknown]

NARRATIVE: CASE EVENT DATE: 20110812
